FAERS Safety Report 9878412 (Version 1)
Quarter: 2014Q1

REPORT INFORMATION
  Report Type: Spontaneous
  Country: US (occurrence: US)
  Receive Date: 20140206
  Receipt Date: 20140206
  Transmission Date: 20141002
  Serious: No
  Sender: FDA-Public Use
  Company Number: US-ALLERGAN-1311315US

PATIENT
  Age: 46 Year
  Sex: Female

DRUGS (6)
  1. BOTOX COSMETIC [Suspect]
     Indication: SKIN WRINKLING
     Dosage: 16 UNITS, SINGLE
  2. BOTOX COSMETIC [Suspect]
     Indication: SKIN WRINKLING
     Dosage: 4 UNITS, SINGLE
  3. BOTOX COSMETIC [Suspect]
     Indication: SKIN WRINKLING
     Dosage: 4 UNITS, SINGLE
  4. BOTOX COSMETIC [Suspect]
     Indication: FACE LIFT
     Dosage: 4 UNITS, SINGLE
  5. BOTOX COSMETIC [Suspect]
     Dosage: 1 UNITS, SINGLE
  6. BOTOX COSMETIC [Suspect]
     Dosage: 1 UNITS, SINGLE

REACTIONS (5)
  - Off label use [Unknown]
  - Wrong technique in drug usage process [Unknown]
  - Brow ptosis [Unknown]
  - Periorbital oedema [Unknown]
  - Facial paresis [Unknown]
